FAERS Safety Report 19614484 (Version 2)
Quarter: 2021Q3

REPORT INFORMATION
  Report Type: Spontaneous
  Country: US (occurrence: US)
  Receive Date: 20210727
  Receipt Date: 20210817
  Transmission Date: 20211014
  Serious: Yes (Death, Hospitalization)
  Sender: FDA-Public Use
  Company Number: US-ENDO PHARMACEUTICALS INC-2021-010436

PATIENT
  Age: 75 Year
  Sex: Male
  Weight: 75.28 kg

DRUGS (7)
  1. REVATIO [Concomitant]
     Active Substance: SILDENAFIL CITRATE
     Indication: PULMONARY ARTERIAL HYPERTENSION
     Dosage: 40 MG, TID
     Route: 048
     Dates: start: 20200211, end: 20210716
  2. TOPROL XL [Concomitant]
     Active Substance: METOPROLOL SUCCINATE
     Indication: CARDIAC FAILURE CONGESTIVE
     Dosage: 12.5 MG, DAILY
     Route: 048
     Dates: start: 20200415, end: 20210716
  3. VELETRI [Concomitant]
     Active Substance: EPOPROSTENOL
     Indication: PULMONARY ARTERIAL HYPERTENSION
     Dosage: 44 NG/KG/MIN CONTINUOUS
     Route: 042
     Dates: start: 20200131, end: 20210716
  4. PRAVASTATIN. [Concomitant]
     Active Substance: PRAVASTATIN
     Indication: DYSLIPIDAEMIA
     Dosage: 80 MG, DAILY
     Route: 048
     Dates: start: 20200415, end: 20210716
  5. BOSENTAN. [Suspect]
     Active Substance: BOSENTAN
     Indication: PULMONARY ARTERIAL HYPERTENSION
     Dosage: 125 MG, BID
     Route: 048
     Dates: start: 20190916, end: 20210716
  6. BUMEX [Concomitant]
     Active Substance: BUMETANIDE
     Indication: CARDIAC FAILURE CONGESTIVE
     Dosage: 2 MG, BID
     Route: 048
     Dates: start: 20210208, end: 20210716
  7. GABAPENTIN. [Concomitant]
     Active Substance: GABAPENTIN
     Indication: NEURALGIA
     Dosage: 100 MG, TID
     Route: 048
     Dates: start: 20200415, end: 20210716

REACTIONS (4)
  - Acute kidney injury [Unknown]
  - Acute respiratory failure [Unknown]
  - Cardiac failure congestive [Unknown]
  - Death [Fatal]

NARRATIVE: CASE EVENT DATE: 20210709
